FAERS Safety Report 23184646 (Version 2)
Quarter: 2023Q4

REPORT INFORMATION
  Report Type: Spontaneous
  Country: US (occurrence: US)
  Receive Date: 20231115
  Receipt Date: 20231207
  Transmission Date: 20240110
  Serious: Yes (Other)
  Sender: FDA-Public Use
  Company Number: US-UCBSA-2023035456

PATIENT
  Age: 65 Year
  Sex: Male
  Weight: 95.692 kg

DRUGS (2)
  1. CIMZIA [Suspect]
     Active Substance: CERTOLIZUMAB PEGOL
     Indication: Ankylosing spondylitis
     Dosage: STRENGTH 200 MILLIGRAM PER MILLILITRE
     Route: 058
     Dates: start: 20210710
  2. CIMZIA [Suspect]
     Active Substance: CERTOLIZUMAB PEGOL
     Dosage: 200 MILLIGRAM (1ML), EV 2 WEEKS(QOW)
     Route: 058

REACTIONS (8)
  - Ankylosing spondylitis [Recovering/Resolving]
  - Haematochezia [Recovering/Resolving]
  - Injection site haemorrhage [Not Recovered/Not Resolved]
  - Catheter placement [Unknown]
  - Influenza [Recovering/Resolving]
  - Needle issue [Unknown]
  - Syringe issue [Unknown]
  - Product dose omission issue [Unknown]

NARRATIVE: CASE EVENT DATE: 20230710
